FAERS Safety Report 20725239 (Version 1)
Quarter: 2022Q2

REPORT INFORMATION
  Report Type: Report from Study
  Country: FR (occurrence: FR)
  Receive Date: 20220419
  Receipt Date: 20220419
  Transmission Date: 20220721
  Serious: Yes (Hospitalization)
  Sender: FDA-Public Use
  Company Number: FR-PFIZER INC-202200543154

PATIENT
  Age: 72 Year
  Sex: Male
  Weight: 52 kg

DRUGS (5)
  1. BEVACIZUMAB [Suspect]
     Active Substance: BEVACIZUMAB
     Dosage: 450 MG
     Route: 042
     Dates: start: 20211104, end: 20211104
  2. XARELTO [Concomitant]
     Active Substance: RIVAROXABAN
     Dosage: 20 MG, DAILY (IN THE MORNING)
  3. BISOPROLOL [Concomitant]
     Active Substance: BISOPROLOL
     Dosage: 5 MG, DAILY (1 TABLET DAILY)
  4. ACETAMINOPHEN [Concomitant]
     Active Substance: ACETAMINOPHEN
     Dosage: 1 G EVERY 6 HOURS IF PAIN
  5. IMOVANE [Concomitant]
     Active Substance: ZOPICLONE
     Dosage: 3.75 MG IN THE EVENING

REACTIONS (2)
  - Atrial fibrillation [Recovered/Resolved with Sequelae]
  - Left ventricular dysfunction [Recovered/Resolved with Sequelae]

NARRATIVE: CASE EVENT DATE: 20211222
